FAERS Safety Report 5371517-0 (Version None)
Quarter: 2007Q2

REPORT INFORMATION
  Report Type: 
  Country: None (occurrence: None)
  Receive Date: 20070618
  Receipt Date: 20070125
  Transmission Date: 20071010
  Serious: Yes (Other)
  Sender: FDA-Public Use
  Company Number: PHEH2007US01282

PATIENT
  Age: 60 Year
  Sex: Male

DRUGS (14)
  1. GLEEVEC [Suspect]
     Indication: CHRONIC MYELOID LEUKAEMIA
     Dosage: 400 MG, QD, ORAL; 800 MG, QD, ORAL; 400 MG, QD, ORAL
     Route: 048
     Dates: start: 20050513, end: 20060401
  2. GLEEVEC [Suspect]
     Indication: CHRONIC MYELOID LEUKAEMIA
     Dosage: 400 MG, QD, ORAL; 800 MG, QD, ORAL; 400 MG, QD, ORAL
     Route: 048
     Dates: start: 20060418, end: 20070108
  3. GLEEVEC [Suspect]
     Indication: CHRONIC MYELOID LEUKAEMIA
     Dosage: 400 MG, QD, ORAL; 800 MG, QD, ORAL; 400 MG, QD, ORAL
     Route: 048
     Dates: start: 20070109, end: 20070114
  4. ALLOPURINOL [Concomitant]
  5. VITAMIN B12 [Concomitant]
  6. CALTRATE 600 + VITAMIN D (CALCIUM CARBONATE, ERGOCALCIFEROL) [Concomitant]
  7. CELEBREX [Concomitant]
  8. ENALAPRIL MALEATE [Concomitant]
  9. IMODIUM [Concomitant]
  10. LOVASTATIN [Concomitant]
  11. MECLIZINE [Concomitant]
  12. PEPCID [Concomitant]
  13. FUROSEMIDE [Concomitant]
  14. PROPOXYPHENE NAPSYLATE W/ACETAMINOPHENE (DEXTROPROPOXYPHENE NAPSILATE, [Concomitant]

REACTIONS (4)
  - DYSPNOEA EXERTIONAL [None]
  - FATIGUE [None]
  - OXYGEN SATURATION DECREASED [None]
  - PNEUMONITIS [None]
